FAERS Safety Report 12374612 (Version 2)
Quarter: 2016Q2

REPORT INFORMATION
  Report Type: Report from Study
  Country: BR (occurrence: BR)
  Receive Date: 20160517
  Receipt Date: 20160524
  Transmission Date: 20160815
  Serious: Yes (Other)
  Sender: FDA-Public Use
  Company Number: PHHY2016BR066806

PATIENT
  Sex: Male
  Weight: 31 kg

DRUGS (1)
  1. RITALIN LA [Suspect]
     Active Substance: METHYLPHENIDATE HYDROCHLORIDE
     Indication: ATTENTION DEFICIT/HYPERACTIVITY DISORDER
     Dosage: 1 DF, QD
     Route: 048

REACTIONS (12)
  - Anxiety [Unknown]
  - Abnormal behaviour [Unknown]
  - Headache [Unknown]
  - Suicidal ideation [Unknown]
  - Major depression [Unknown]
  - Aggression [Unknown]
  - Eating disorder [Recovering/Resolving]
  - Depressed mood [Unknown]
  - Depression [Unknown]
  - Anger [Unknown]
  - Irritability [Unknown]
  - Impatience [Unknown]
